FAERS Safety Report 19075820 (Version 2)
Quarter: 2021Q3

REPORT INFORMATION
  Report Type: Spontaneous
  Country: US (occurrence: US)
  Receive Date: 20210330
  Receipt Date: 20210808
  Transmission Date: 20211014
  Serious: Yes (Other)
  Sender: FDA-Public Use
  Company Number: US-GILEAD-2021-0523103

PATIENT
  Age: 55 Year
  Sex: Male
  Weight: 100.68 kg

DRUGS (22)
  1. TRUVADA [Suspect]
     Active Substance: EMTRICITABINE\TENOFOVIR DISOPROXIL FUMARATE
     Indication: HIV INFECTION
     Dosage: UNK
     Route: 048
     Dates: start: 2009
  2. KALETRA [Concomitant]
     Active Substance: LOPINAVIR\RITONAVIR
  3. DULOXETINE. [Concomitant]
     Active Substance: DULOXETINE
  4. FLUCONAZOLE. [Concomitant]
     Active Substance: FLUCONAZOLE
  5. NASONEX [Concomitant]
     Active Substance: MOMETASONE FUROATE
  6. SUSTIVA [Concomitant]
     Active Substance: EFAVIRENZ
  7. INVIRASE [Concomitant]
     Active Substance: SAQUINAVIR MESYLATE
  8. LISINOPRIL. [Concomitant]
     Active Substance: LISINOPRIL
  9. CRIXIVAN [Concomitant]
     Active Substance: INDINAVIR SULFATE
  10. NORVIR [Concomitant]
     Active Substance: RITONAVIR
  11. ZERIT [Concomitant]
     Active Substance: STAVUDINE
  12. TRAZODONE [Concomitant]
     Active Substance: TRAZODONE HYDROCHLORIDE
  13. TRUVADA [Suspect]
     Active Substance: EMTRICITABINE\TENOFOVIR DISOPROXIL FUMARATE
     Dosage: UNK
     Route: 065
     Dates: start: 2006, end: 2020
  14. ALBUTEROL [SALBUTAMOL] [Concomitant]
     Active Substance: ALBUTEROL
  15. BANOPHEN [Concomitant]
     Active Substance: DIPHENHYDRAMINE HYDROCHLORIDE
  16. LATUDA [Concomitant]
     Active Substance: LURASIDONE HYDROCHLORIDE
  17. BIKTARVY [Concomitant]
     Active Substance: BICTEGRAVIR SODIUM\EMTRICITABINE\TENOFOVIR ALAFENAMIDE FUMARATE
  18. RETROVIR [Concomitant]
     Active Substance: ZIDOVUDINE
  19. TIVICAY [Concomitant]
     Active Substance: DOLUTEGRAVIR SODIUM
  20. VIRACEPT [Concomitant]
     Active Substance: NELFINAVIR MESYLATE
  21. TRUVADA [Suspect]
     Active Substance: EMTRICITABINE\TENOFOVIR DISOPROXIL FUMARATE
     Dosage: UNK
     Route: 065
     Dates: start: 200408, end: 2006
  22. METFORMIN [Concomitant]
     Active Substance: METFORMIN HYDROCHLORIDE

REACTIONS (7)
  - Anhedonia [Not Recovered/Not Resolved]
  - Emotional distress [Not Recovered/Not Resolved]
  - Pain [Not Recovered/Not Resolved]
  - Anxiety [Not Recovered/Not Resolved]
  - Gait disturbance [Unknown]
  - Renal failure [Recovered/Resolved]
  - Dysstasia [Unknown]

NARRATIVE: CASE EVENT DATE: 201512
